FAERS Safety Report 5365584-8 (Version None)
Quarter: 2007Q2

REPORT INFORMATION
  Report Type: 
  Country: None (occurrence: None)
  Receive Date: 20070621
  Receipt Date: 20070611
  Transmission Date: 20071010
  Serious: Yes (Other)
  Sender: FDA-Public Use
  Company Number: BR-ROCHE-460326

PATIENT
  Age: 31 Year
  Sex: Female

DRUGS (3)
  1. ISOTRETINOIN [Suspect]
     Indication: ACNE
     Route: 048
     Dates: start: 20051201, end: 20060601
  2. ISOTRETINOIN [Suspect]
     Route: 048
     Dates: start: 20060601, end: 20060801
  3. CONTRACEPTIVE [Concomitant]
     Indication: CONTRACEPTION
     Dosage: THE PATIENT SOMETIMES FORGOT TO TAKE THE CONTRACEPTIVE.
     Route: 048

REACTIONS (1)
  - ABORTION INDUCED [None]
